FAERS Safety Report 7366958-6 (Version None)
Quarter: 2011Q1

REPORT INFORMATION
  Report Type: 
  Country: None (occurrence: None)
  Receive Date: 20110322
  Receipt Date: 20110316
  Transmission Date: 20110831
  Serious: No
  Sender: FDA-Public Use
  Company Number: US-PFIZER INC-2011058535

PATIENT
  Sex: Female
  Weight: 74.376 kg

DRUGS (1)
  1. PREMPRO [Suspect]
     Indication: HOT FLUSH
     Dosage: 0.625/5 MG
     Dates: start: 20110301

REACTIONS (1)
  - DRUG INEFFECTIVE [None]
